FAERS Safety Report 6915924-0 (Version None)
Quarter: 2010Q3

REPORT INFORMATION
  Report Type: 
  Country: None (occurrence: None)
  Receive Date: 20100810
  Receipt Date: 20100721
  Transmission Date: 20110219
  Serious: Yes (Life-Threatening, Hospitalization)
  Sender: FDA-Public Use
  Company Number: FR-CELGENEUS-056-C5013-09042633

PATIENT
  Sex: Male
  Weight: 57 kg

DRUGS (3)
  1. LENALIDOMIDE [Suspect]
     Indication: T-CELL LYMPHOMA
     Route: 048
     Dates: start: 20090415, end: 20090421
  2. LENALIDOMIDE [Suspect]
     Route: 048
     Dates: start: 20090316
  3. ACYCLOVIR [Concomitant]
     Indication: EYE INFECTION
     Route: 048
     Dates: start: 20090427, end: 20090610

REACTIONS (7)
  - BLINDNESS UNILATERAL [None]
  - CYTOMEGALOVIRUS INFECTION [None]
  - HERPES OPHTHALMIC [None]
  - LEUKOPENIA [None]
  - NEUTROPENIA [None]
  - OCULAR VASCULITIS [None]
  - THROMBOCYTOPENIA [None]
